FAERS Safety Report 4303767-6 (Version None)
Quarter: 2004Q1

REPORT INFORMATION
  Report Type: 
  Country: None (occurrence: None)
  Receive Date: 20040225
  Receipt Date: 20040216
  Transmission Date: 20041129
  Serious: Yes (Other)
  Sender: FDA-Public Use
  Company Number: PHBS2004AT02243

PATIENT
  Age: 42 Year
  Sex: Male

DRUGS (1)
  1. LAMISIL [Suspect]
     Dosage: 250 MG, QD
     Route: 048

REACTIONS (3)
  - LOCAL SWELLING [None]
  - OROPHARYNGEAL SWELLING [None]
  - THYROID GLAND CANCER [None]
